FAERS Safety Report 7728309-4 (Version None)
Quarter: 2011Q3

REPORT INFORMATION
  Report Type: 
  Country: None (occurrence: None)
  Receive Date: 20110905
  Receipt Date: 20110830
  Transmission Date: 20111222
  Serious: Yes (Death, Hospitalization, Other)
  Sender: FDA-Public Use
  Company Number: PHEH2009US17188

PATIENT
  Sex: Female
  Weight: 77.551 kg

DRUGS (10)
  1. PRILOSEC [Concomitant]
     Dosage: 40 MG, BID
     Route: 048
  2. EXJADE [Suspect]
     Dosage: 1500 MG, DAILY
     Route: 048
     Dates: start: 20090921, end: 20091016
  3. KEPPRA [Concomitant]
     Dosage: 1 G, BID
     Route: 048
  4. METOPROLOL [Concomitant]
     Dosage: 12.5 MG, BID
     Route: 048
  5. ATIVAN [Concomitant]
  6. CYTOXAN [Concomitant]
  7. BUSULFAN [Concomitant]
  8. CALCIUM CARBONATE [Concomitant]
  9. ZOFRAN [Concomitant]
  10. ERGOCALCIFEROL [Concomitant]

REACTIONS (37)
  - GRAFT VERSUS HOST DISEASE [None]
  - ELECTROCARDIOGRAM QT PROLONGED [None]
  - TACHYARRHYTHMIA [None]
  - ACUTE MYELOID LEUKAEMIA RECURRENT [None]
  - NEUROPATHY PERIPHERAL [None]
  - CYTOMEGALOVIRUS INFECTION [None]
  - HYPOAESTHESIA [None]
  - BLOOD MAGNESIUM DECREASED [None]
  - FATIGUE [None]
  - BLOOD PRESSURE SYSTOLIC INCREASED [None]
  - DEEP VEIN THROMBOSIS [None]
  - ATRIAL TACHYCARDIA [None]
  - SEPSIS [None]
  - DIARRHOEA [None]
  - PERINEAL PAIN [None]
  - PARAESTHESIA [None]
  - PLATELET COUNT DECREASED [None]
  - BONE DISORDER [None]
  - ELECTROLYTE IMBALANCE [None]
  - BLOOD PRESSURE DECREASED [None]
  - SUBDURAL HAEMATOMA [None]
  - DIABETES MELLITUS [None]
  - PANCYTOPENIA [None]
  - BLOOD PRESSURE DIASTOLIC INCREASED [None]
  - BLOOD ALKALINE PHOSPHATASE INCREASED [None]
  - GAMMA-GLUTAMYLTRANSFERASE INCREASED [None]
  - OSTEONECROSIS [None]
  - MUSCULOSKELETAL PAIN [None]
  - ANIMAL SCRATCH [None]
  - POST PROCEDURAL COMPLICATION [None]
  - CEREBRAL HAEMORRHAGE [None]
  - MYELODYSPLASTIC SYNDROME [None]
  - LIMB DEFORMITY [None]
  - MALAISE [None]
  - ABDOMINAL PAIN [None]
  - GENERALISED ERYTHEMA [None]
  - ANXIETY [None]
